FAERS Safety Report 5609469-8 (Version None)
Quarter: 2008Q1

REPORT INFORMATION
  Report Type: 
  Country: None (occurrence: None)
  Receive Date: 20080131
  Receipt Date: 20080128
  Transmission Date: 20080703
  Serious: Yes (Death)
  Sender: FDA-Public Use
  Company Number: CH-AVENTIS-200810793GDDC

PATIENT
  Age: 26 Year
  Sex: Female
  Weight: 50.7 kg

DRUGS (1)
  1. EFLORNITHINE [Suspect]
     Indication: AFRICAN TRYPANOSOMIASIS
     Route: 042
     Dates: start: 20071207, end: 20071215

REACTIONS (9)
  - ASPIRATION [None]
  - BLOOD PRESSURE DECREASED [None]
  - CONFUSIONAL STATE [None]
  - CONVULSION [None]
  - DELIRIUM [None]
  - GENERAL PHYSICAL HEALTH DETERIORATION [None]
  - HEART RATE INCREASED [None]
  - INFUSION SITE CELLULITIS [None]
  - LOSS OF CONSCIOUSNESS [None]
